FAERS Safety Report 12483636 (Version 2)
Quarter: 2024Q3

REPORT INFORMATION
  Report Type: Spontaneous
  Country: US (occurrence: US)
  Receive Date: 20160621
  Receipt Date: 20240924
  Transmission Date: 20241017
  Serious: Yes (Hospitalization, Other)
  Sender: ACCORD
  Company Number: None

PATIENT
  Age: 18 Year
  Sex: Female

DRUGS (7)
  1. MYCOPHENOLIC ACID [Suspect]
     Active Substance: MYCOPHENOLIC ACID
     Indication: Glomerulonephritis chronic
  2. LEVETIRACETAM [Concomitant]
     Active Substance: LEVETIRACETAM
  3. METOPROLOL [Concomitant]
     Active Substance: METOPROLOL
  4. NIFEDIPINE [Concomitant]
     Active Substance: NIFEDIPINE
  5. FOLIC ACID [Concomitant]
     Active Substance: FOLIC ACID
  6. EPOETIN ALFA [Concomitant]
     Active Substance: ERYTHROPOIETIN
  7. PREDNISONE [Concomitant]
     Active Substance: PREDNISONE
     Indication: Glomerulonephritis chronic

REACTIONS (2)
  - Posterior reversible encephalopathy syndrome [Recovering/Resolving]
  - Off label use [Unknown]
